FAERS Safety Report 9974213 (Version 1)
Quarter: 2014Q1

REPORT INFORMATION
  Report Type: Report from Study
  Country: US (occurrence: US)
  Receive Date: 20140306
  Receipt Date: 20140306
  Transmission Date: 20141002
  Serious: No
  Sender: FDA-Public Use
  Company Number: US-ABBVIE-13P-163-1158844-00

PATIENT
  Age: 77 Year
  Sex: Female
  Weight: 63.56 kg

DRUGS (15)
  1. HUMIRA [Suspect]
     Indication: CROHN^S DISEASE
     Dosage: LOADING DOSE
     Dates: start: 20130820, end: 20130820
  2. HUMIRA [Suspect]
     Indication: ARTHRITIS
     Dosage: SECOND DOSE
     Dates: start: 20130904, end: 20130904
  3. HUMIRA [Suspect]
     Dates: start: 20130918
  4. MERCAPTOPURINE [Concomitant]
     Indication: PRODUCT USED FOR UNKNOWN INDICATION
     Dates: start: 201307
  5. LIPTOR [Concomitant]
     Indication: BLOOD CHOLESTEROL INCREASED
  6. SYNTHROID [Concomitant]
     Indication: THYROID DISORDER
  7. ALPRAZOLAM [Concomitant]
     Indication: ANXIETY
  8. VITAMIN D3 [Concomitant]
     Indication: VITAMIN SUPPLEMENTATION
  9. FISH OIL [Concomitant]
     Indication: INFLAMMATION
  10. PREDNISONE [Concomitant]
     Indication: ARTHRITIS
  11. METAMUCIL [Concomitant]
     Indication: SUPPLEMENTATION THERAPY
  12. ESTRACE VAGINAL [Concomitant]
     Indication: HORMONE THERAPY
  13. CYSTEX [Concomitant]
     Indication: SUPPLEMENTATION THERAPY
  14. MACROBID [Concomitant]
     Indication: INFECTION PROPHYLAXIS
  15. TYLENOL [Concomitant]
     Indication: ARTHRITIS

REACTIONS (5)
  - Malaise [Not Recovered/Not Resolved]
  - Asthenia [Not Recovered/Not Resolved]
  - Pain [Not Recovered/Not Resolved]
  - Pain [Not Recovered/Not Resolved]
  - Asthenia [Not Recovered/Not Resolved]
